FAERS Safety Report 21354354 (Version 4)
Quarter: 2022Q4

REPORT INFORMATION
  Report Type: Spontaneous
  Country: ES (occurrence: ES)
  Receive Date: 20220920
  Receipt Date: 20221223
  Transmission Date: 20230112
  Serious: Yes (Death, Hospitalization, Other)
  Sender: FDA-Public Use
  Company Number: ES-ASTELLAS-2022US031696

PATIENT
  Age: 62 Year
  Sex: Male

DRUGS (1)
  1. PADCEV [Suspect]
     Active Substance: ENFORTUMAB VEDOTIN-EJFV
     Indication: Transitional cell carcinoma
     Dosage: 112.5 MG, TOTAL DOSE ON 1ST AND 8TH DAYS
     Route: 042
     Dates: start: 20220817, end: 20220824

REACTIONS (6)
  - Malignant neoplasm progression [Fatal]
  - Sepsis [Fatal]
  - Renal failure [Recovered/Resolved]
  - Hepatic enzyme increased [Not Recovered/Not Resolved]
  - Diarrhoea [Recovered/Resolved]
  - Dehydration [Unknown]

NARRATIVE: CASE EVENT DATE: 20220101
